FAERS Safety Report 9465306 (Version 2)
Quarter: 2013Q3

REPORT INFORMATION
  Report Type: Spontaneous
  Country: US (occurrence: US)
  Receive Date: 20130820
  Receipt Date: 20130826
  Transmission Date: 20140515
  Serious: No
  Sender: FDA-Public Use
  Company Number: US-009507513-1308USA007033

PATIENT
  Sex: 0
  Weight: 68.27 kg

DRUGS (2)
  1. NEXPLANON [Suspect]
     Dosage: UNK, 1 ROD EVERY 3 YEARS
     Route: 059
     Dates: start: 20130813
  2. NEXPLANON [Suspect]
     Dosage: UNK, 1 ROD EVERY 3 YEARS
     Route: 059
     Dates: start: 201308

REACTIONS (4)
  - Device difficult to use [Not Recovered/Not Resolved]
  - Device difficult to use [Not Recovered/Not Resolved]
  - Product quality issue [Unknown]
  - No adverse event [Unknown]
